FAERS Safety Report 10693178 (Version 1)
Quarter: 2015Q1

REPORT INFORMATION
  Report Type: Spontaneous
  Country: DK (occurrence: DK)
  Receive Date: 20150106
  Receipt Date: 20150106
  Transmission Date: 20150720
  Serious: Yes (Other)
  Sender: FDA-Public Use
  Company Number: DK-TEVA-532288ISR

PATIENT
  Sex: Female

DRUGS (4)
  1. MUCOLYSIN [Suspect]
     Active Substance: TIOPRONIN
     Indication: PRODUCTIVE COUGH
     Route: 048
     Dates: end: 2014
  2. IBUPROFEN. [Suspect]
     Active Substance: IBUPROFEN
     Indication: MALAISE
     Route: 065
  3. PINEX [Suspect]
     Active Substance: ACETAMINOPHEN
     Indication: MALAISE
     Dosage: 1000 MILLIGRAM DAILY;
     Route: 065
  4. MUCOLYSIN [Suspect]
     Active Substance: TIOPRONIN
     Indication: INFLUENZA

REACTIONS (7)
  - Paraesthesia oral [Recovered/Resolved]
  - Pharyngitis [Recovered/Resolved]
  - Swollen tongue [Recovered/Resolved]
  - Heart rate increased [Recovered/Resolved]
  - Urticaria [Recovered/Resolved]
  - Respiratory distress [Recovered/Resolved]
  - Stomatitis [Recovered/Resolved]
